FAERS Safety Report 12549975 (Version 1)
Quarter: 2016Q3

REPORT INFORMATION
  Report Type: Spontaneous
  Country: JP (occurrence: JP)
  Receive Date: 20160712
  Receipt Date: 20160712
  Transmission Date: 20161109
  Serious: Yes (Death)
  Sender: FDA-Public Use
  Company Number: JP-MALLINCKRODT-T201602933

PATIENT
  Age: 73 Year
  Sex: Female
  Weight: 46 kg

DRUGS (23)
  1. MORPHINE [Concomitant]
     Active Substance: MORPHINE
     Indication: ANALGESIC THERAPY
     Dosage: 1.2- 2.3 MG , PRN
     Route: 051
     Dates: start: 20150709
  2. SERENACE [Concomitant]
     Active Substance: HALOPERIDOL
     Dosage: 2.8 MG
     Route: 051
     Dates: start: 20150710, end: 20150713
  3. METHADONE [Suspect]
     Active Substance: METHADONE HYDROCHLORIDE
     Dosage: 10 MG (30 MG DAILY DOSE)
     Route: 048
     Dates: start: 20150730, end: 20150802
  4. MORPHINE [Concomitant]
     Active Substance: MORPHINE
     Dosage: 10 MG
     Route: 051
     Dates: start: 20150722
  5. MAGMITT [Concomitant]
     Active Substance: MAGNESIUM OXIDE
     Dosage: 990 MG
     Route: 048
  6. METHADONE [Suspect]
     Active Substance: METHADONE HYDROCHLORIDE
     Dosage: 25 MG DAILY DOSE
     Route: 048
     Dates: start: 20150821, end: 20150901
  7. NEXIUM [Concomitant]
     Active Substance: ESOMEPRAZOLE MAGNESIUM
     Dosage: 20 MG
     Route: 048
  8. PREDONINE [Concomitant]
     Active Substance: PREDNISOLONE\PREDNISOLONE ACETATE\PREDNISOLONE SODIUM SUCCINATE
     Dosage: 15MG
     Route: 048
     Dates: start: 20150721
  9. METHADONE [Suspect]
     Active Substance: METHADONE HYDROCHLORIDE
     Indication: CANCER PAIN
     Dosage: 5 MG, (10MG DAILY DOSE)
     Route: 048
     Dates: start: 20150710, end: 20150713
  10. METHADONE [Suspect]
     Active Substance: METHADONE HYDROCHLORIDE
     Dosage: 10 MG (20 MG DAILY DOSE)
     Route: 048
     Dates: start: 20150803, end: 20150820
  11. SERENACE [Concomitant]
     Active Substance: HALOPERIDOL
     Dosage: 0.5 MG
     Route: 048
     Dates: start: 20150722
  12. METHADONE [Suspect]
     Active Substance: METHADONE HYDROCHLORIDE
     Dosage: 20 MG DAILY DOSE
     Route: 048
     Dates: start: 20150721, end: 20150725
  13. PREDONINE [Concomitant]
     Active Substance: PREDNISOLONE\PREDNISOLONE ACETATE\PREDNISOLONE SODIUM SUCCINATE
     Indication: ANALGESIC THERAPY
     Dosage: 10 MG
     Route: 048
     Dates: end: 20150720
  14. METHADONE [Suspect]
     Active Substance: METHADONE HYDROCHLORIDE
     Dosage: 10 MG (20 MG DAILY DOSE)
     Route: 048
     Dates: start: 20150902, end: 20150904
  15. MORPHINE [Concomitant]
     Active Substance: MORPHINE
     Dosage: 30 MG
     Route: 051
     Dates: start: 20150714, end: 20150716
  16. MORPHINE [Concomitant]
     Active Substance: MORPHINE
     Dosage: 20 MG
     Route: 051
     Dates: start: 20150717, end: 20160721
  17. SERENACE [Concomitant]
     Active Substance: HALOPERIDOL
     Dosage: 1 MG
     Route: 051
     Dates: start: 20150717, end: 20150721
  18. RINDERON V [Concomitant]
     Active Substance: BETAMETHASONE VALERATE
     Dosage: 2 MG
     Route: 051
     Dates: start: 20150714, end: 20150720
  19. METHADONE [Suspect]
     Active Substance: METHADONE HYDROCHLORIDE
     Dosage: 5 MG (15 MG DAILY DOSE)
     Route: 048
     Dates: start: 20150714, end: 20150720
  20. METHADONE [Suspect]
     Active Substance: METHADONE HYDROCHLORIDE
     Dosage: 25 MG DAILY DOSE
     Route: 048
     Dates: start: 20150726, end: 20150729
  21. SERENACE [Concomitant]
     Active Substance: HALOPERIDOL
     Dosage: 1.5 MG
     Route: 051
     Dates: start: 20150714, end: 20150716
  22. MORPHINE [Concomitant]
     Active Substance: MORPHINE
     Dosage: 55 MG
     Route: 051
     Dates: start: 20150710, end: 20150713
  23. RINDERON V [Concomitant]
     Active Substance: BETAMETHASONE VALERATE
     Indication: ANALGESIC THERAPY
     Dosage: 4 MG
     Route: 051
     Dates: end: 20150713

REACTIONS (2)
  - Pleural mesothelioma malignant [Fatal]
  - Somnolence [Recovered/Resolved]

NARRATIVE: CASE EVENT DATE: 20150802
